FAERS Safety Report 5213027-7 (Version None)
Quarter: 2007Q1

REPORT INFORMATION
  Report Type: 
  Country: None (occurrence: None)
  Receive Date: 20070117
  Receipt Date: 20070117
  Transmission Date: 20070707
  Serious: Yes (Hospitalization)
  Sender: FDA-Public Use
  Company Number: None

PATIENT
  Age: 88 Year
  Sex: Female
  Weight: 72.4 kg

DRUGS (1)
  1. COUMADIN [Suspect]
     Indication: ATRIAL FIBRILLATION
     Dosage: 2.5 MG DAILY PO
     Route: 048

REACTIONS (2)
  - COAGULOPATHY [None]
  - HAEMATURIA [None]
